FAERS Safety Report 9083309 (Version 1)
Quarter: 2013Q1

REPORT INFORMATION
  Report Type: Report from Study
  Country: US (occurrence: US)
  Receive Date: 20130131
  Receipt Date: 20130131
  Transmission Date: 20140127
  Serious: No
  Sender: FDA-Public Use
  Company Number: US-ABBOTT-12P-163-0989469-00

PATIENT
  Age: 64 Year
  Sex: Female

DRUGS (9)
  1. HUMIRA [Suspect]
     Indication: PRODUCT USED FOR UNKNOWN INDICATION
     Dates: start: 201207
  2. ESTAZOLAM [Concomitant]
     Indication: INSOMNIA
  3. TOPROL [Concomitant]
     Indication: BLOOD PRESSURE
  4. LISINOPRIL [Concomitant]
     Indication: BLOOD PRESSURE
  5. ZOCOR [Concomitant]
     Indication: BLOOD CHOLESTEROL
  6. NEURONTIN [Concomitant]
     Indication: PAIN
  7. IBUPROFEN [Concomitant]
     Indication: ARTHRALGIA
  8. VITAMIN B12 [Concomitant]
     Indication: PRODUCT USED FOR UNKNOWN INDICATION
  9. VITAMIN D [Concomitant]
     Indication: PRODUCT USED FOR UNKNOWN INDICATION

REACTIONS (9)
  - Skin disorder [Not Recovered/Not Resolved]
  - Asthenia [Not Recovered/Not Resolved]
  - Fatigue [Not Recovered/Not Resolved]
  - Balance disorder [Not Recovered/Not Resolved]
  - Poor quality sleep [Not Recovered/Not Resolved]
  - Chest discomfort [Not Recovered/Not Resolved]
  - Drug dose omission [Not Recovered/Not Resolved]
  - Device malfunction [Not Recovered/Not Resolved]
  - Pain in extremity [Not Recovered/Not Resolved]
